FAERS Safety Report 10682317 (Version 2)
Quarter: 2014Q4

REPORT INFORMATION
  Report Type: Spontaneous
  Country: US (occurrence: US)
  Receive Date: 20141230
  Receipt Date: 20141230
  Transmission Date: 20150529
  Serious: No
  Sender: FDA-Public Use
  Company Number: US-009507513-1411USA001130

PATIENT
  Sex: Male
  Weight: 71.2 kg

DRUGS (1)
  1. PEGINTRON [Suspect]
     Active Substance: PEGINTERFERON ALFA-2B
     Dosage: ONE 120 MICROGRAM ONCE WEEKLY
     Route: 058
     Dates: start: 20141018

REACTIONS (4)
  - No adverse event [Unknown]
  - Wrong technique in drug usage process [Recovered/Resolved]
  - Incorrect dose administered [Recovered/Resolved]
  - Product quality issue [Recovered/Resolved]
